FAERS Safety Report 7666054-4 (Version None)
Quarter: 2011Q3

REPORT INFORMATION
  Report Type: 
  Country: None (occurrence: None)
  Receive Date: 20110806
  Receipt Date: 20110524
  Transmission Date: 20111222
  Serious: No
  Sender: FDA-Public Use
  Company Number: US-ABBOTT-11P-163-0728176-00

PATIENT
  Sex: Male
  Weight: 80.358 kg

DRUGS (17)
  1. ZANTAC [Concomitant]
     Indication: PRODUCT USED FOR UNKNOWN INDICATION
  2. FISH OIL [Concomitant]
     Indication: PRODUCT USED FOR UNKNOWN INDICATION
  3. EFFICENT [Concomitant]
     Indication: PRODUCT USED FOR UNKNOWN INDICATION
     Dosage: 10 MG DAILY
  4. NEXIUM [Concomitant]
     Indication: PRODUCT USED FOR UNKNOWN INDICATION
  5. ASPIRIN [Concomitant]
     Indication: PRODUCT USED FOR UNKNOWN INDICATION
     Dosage: 325 MG DAILY
  6. ATENOLOL [Concomitant]
     Indication: PRODUCT USED FOR UNKNOWN INDICATION
  7. LORAZEPAM [Concomitant]
     Indication: PRODUCT USED FOR UNKNOWN INDICATION
  8. IBU [Concomitant]
     Indication: PRODUCT USED FOR UNKNOWN INDICATION
  9. SIMVASTATIN [Concomitant]
     Indication: PRODUCT USED FOR UNKNOWN INDICATION
     Dosage: AT BEDTIME
  10. ZETIA [Concomitant]
     Indication: PRODUCT USED FOR UNKNOWN INDICATION
     Dosage: 10 MG DAILY
  11. NIASPAN [Suspect]
     Indication: BLOOD TRIGLYCERIDES INCREASED
     Dosage: AT BEDTIME
  12. MIRALAX [Concomitant]
     Indication: PRODUCT USED FOR UNKNOWN INDICATION
  13. GLYBURIDE [Concomitant]
     Indication: PRODUCT USED FOR UNKNOWN INDICATION
  14. CLARINEX [Concomitant]
     Indication: PRODUCT USED FOR UNKNOWN INDICATION
  15. LASIX [Concomitant]
     Indication: PRODUCT USED FOR UNKNOWN INDICATION
     Dosage: 40 MG DAILY
  16. LISINOPRIL [Concomitant]
     Indication: PRODUCT USED FOR UNKNOWN INDICATION
     Dosage: 10 MG DAILY
  17. METFORMIN HCL [Concomitant]
     Indication: PRODUCT USED FOR UNKNOWN INDICATION
     Dosage: 1000MG MORNING, 1500MG IN AFTERNOON

REACTIONS (2)
  - SKIN BURNING SENSATION [None]
  - PRURITUS [None]
